FAERS Safety Report 6079538-X (Version None)
Quarter: 2009Q1

REPORT INFORMATION
  Report Type: 
  Country: None (occurrence: None)
  Receive Date: 20090217
  Receipt Date: 20090211
  Transmission Date: 20090719
  Serious: Yes (Other)
  Sender: FDA-Public Use
  Company Number: CA-RANBAXY-2009RR-21810

PATIENT
  Age: 53 Year
  Sex: Female

DRUGS (1)
  1. ACETAMINOPHEN [Suspect]

REACTIONS (3)
  - ANAPHYLACTIC REACTION [None]
  - HYPOTENSION [None]
  - RESPIRATORY FAILURE [None]
